FAERS Safety Report 23064784 (Version 2)
Quarter: 2023Q4

REPORT INFORMATION
  Report Type: Spontaneous
  Country: ES (occurrence: ES)
  Receive Date: 20231013
  Receipt Date: 20231026
  Transmission Date: 20240110
  Serious: Yes (Other)
  Sender: FDA-Public Use
  Company Number: ES-BAXTER-2023BAX032855

PATIENT
  Age: 33 Year
  Sex: Female

DRUGS (1)
  1. SUPRANE [Suspect]
     Active Substance: DESFLURANE
     Dosage: DROPS (ROUTE: SPLASH) (PRODUCT DESCRIPTION: DESFLURANE SUPRANE 240 ML)
     Route: 050
     Dates: start: 20231002

REACTIONS (2)
  - Ulcerative keratitis [Recovering/Resolving]
  - Accidental exposure to product [Unknown]

NARRATIVE: CASE EVENT DATE: 20231002
